FAERS Safety Report 4478809-8 (Version None)
Quarter: 2004Q3

REPORT INFORMATION
  Report Type: 
  Country: None (occurrence: None)
  Receive Date: 20040923
  Receipt Date: 20040721
  Transmission Date: 20050211
  Serious: No
  Sender: FDA-Public Use
  Company Number: USA040773284

PATIENT
  Age: 76 Year
  Sex: Male

DRUGS (4)
  1. FORTEO [Suspect]
     Indication: OSTEOPOROSIS
     Dates: start: 20040707
  2. TENORMIN (ATENOLOL EG) [Concomitant]
  3. ISOSORBIDE [Concomitant]
  4. LIPITOR [Concomitant]

REACTIONS (5)
  - ABDOMINAL DISTENSION [None]
  - FEELING JITTERY [None]
  - MICTURITION URGENCY [None]
  - NERVOUSNESS [None]
  - PALPITATIONS [None]
